FAERS Safety Report 6841101-8 (Version None)
Quarter: 2010Q3

REPORT INFORMATION
  Report Type: 
  Country: None (occurrence: None)
  Receive Date: 20100714
  Receipt Date: 20070625
  Transmission Date: 20110219
  Serious: No
  Sender: FDA-Public Use
  Company Number: US-PFIZER INC-2007053682

PATIENT
  Sex: Female

DRUGS (7)
  1. CHANTIX [Suspect]
     Indication: SMOKING CESSATION THERAPY
     Dosage: TWICE DAILY
     Route: 048
     Dates: start: 20070618
  2. AMITRIPTYLINE HYDROCHLORIDE [Concomitant]
  3. PROZAC [Concomitant]
  4. PRILOSEC [Concomitant]
  5. XANAX [Concomitant]
  6. ALL OTHER THERAPEUTIC PRODUCTS [Concomitant]
     Route: 055
  7. DURAGESIC-100 [Concomitant]

REACTIONS (2)
  - PRURITUS [None]
  - RASH [None]
